FAERS Safety Report 4532090-X (Version None)
Quarter: 2004Q4

REPORT INFORMATION
  Report Type: 
  Country: None (occurrence: None)
  Receive Date: 20041217
  Receipt Date: 20041207
  Transmission Date: 20050328
  Serious: Yes (Other)
  Sender: FDA-Public Use
  Company Number: 2004-05151

PATIENT
  Age: 72 Year
  Sex: Male

DRUGS (4)
  1. TRELSTAR [Suspect]
     Indication: PROSTATE CANCER
     Dosage: 11.25 MG/M3 MONTHS, INTRAMUSCULAR
     Route: 030
     Dates: start: 20041027
  2. RABEPRAZOLE SODIUM [Concomitant]
  3. ATORVASTATIN CALCIUM [Concomitant]
  4. POLY-KARAYA (STERCULIA, POLYVIDONE) [Concomitant]

REACTIONS (2)
  - HYDROCELE [None]
  - SCROTAL SWELLING [None]
